FAERS Safety Report 17402663 (Version 1)
Quarter: 2020Q1

REPORT INFORMATION
  Report Type: Spontaneous
  Country: ES (occurrence: ES)
  Receive Date: 20200211
  Receipt Date: 20200211
  Transmission Date: 20200409
  Serious: Yes (Other)
  Sender: FDA-Public Use
  Company Number: ES-TEVA-2020-ES-1183663

PATIENT
  Age: 53 Year
  Sex: Male

DRUGS (1)
  1. AMOXICILINA + ?CIDO CLAVUL?NICO [Suspect]
     Active Substance: AMOXICILLIN\CLAVULANIC ACID
     Indication: CHRONIC SINUSITIS
     Dosage: 500 MG
     Route: 048
     Dates: start: 20200105, end: 20200107

REACTIONS (2)
  - Diarrhoea [Recovered/Resolved]
  - Face oedema [Recovered/Resolved]

NARRATIVE: CASE EVENT DATE: 20200107
